FAERS Safety Report 6400367-9 (Version None)
Quarter: 2009Q4

REPORT INFORMATION
  Report Type: 
  Country: None (occurrence: None)
  Receive Date: 20091014
  Receipt Date: 20091008
  Transmission Date: 20100525
  Serious: Yes (Other)
  Sender: FDA-Public Use
  Company Number: DE-ABBOTT-09P-062-0600169-00

PATIENT
  Age: 42 Year
  Sex: Male

DRUGS (1)
  1. ADALIMUMAB [Suspect]
     Indication: ANKYLOSING SPONDYLITIS

REACTIONS (2)
  - NEPHRITIS [None]
  - SARCOIDOSIS [None]
